FAERS Safety Report 22129732 (Version 1)
Quarter: 2023Q1

REPORT INFORMATION
  Report Type: Spontaneous
  Country: US (occurrence: None)
  Receive Date: 20230322
  Receipt Date: 20230322
  Transmission Date: 20230418
  Serious: Yes (Disabling, Other)
  Sender: FDA-Public Use
  Company Number: None

PATIENT
  Age: 26 Year
  Sex: Male
  Weight: 69.75 kg

DRUGS (1)
  1. FINASTERIDE [Suspect]
     Active Substance: FINASTERIDE
     Indication: Alopecia
     Dates: start: 20220801, end: 20230201

REACTIONS (8)
  - Anxiety [None]
  - Depression [None]
  - Suicidal ideation [None]
  - Loss of libido [None]
  - Erectile dysfunction [None]
  - Insomnia [None]
  - Alopecia [None]
  - Feeling abnormal [None]
